FAERS Safety Report 23791116 (Version 2)
Quarter: 2024Q2

REPORT INFORMATION
  Report Type: Spontaneous
  Country: US (occurrence: US)
  Receive Date: 20240428
  Receipt Date: 20240516
  Transmission Date: 20240716
  Serious: Yes (Other)
  Sender: FDA-Public Use
  Company Number: US-GLENMARK PHARMACEUTICALS-2024GMK090398

PATIENT

DRUGS (4)
  1. DEFERASIROX [Suspect]
     Active Substance: DEFERASIROX
     Indication: Iron overload
     Dosage: 720 MILLIGRAM, BID (INITIALLY)
     Route: 048
  2. DEFERASIROX [Suspect]
     Active Substance: DEFERASIROX
     Dosage: 720 MILLIGRAM, QD (TITRATED DOWN TO 720 MG DAILY FOR 1 YEAR)
     Route: 048
  3. DEFERASIROX [Suspect]
     Active Substance: DEFERASIROX
     Dosage: 360 MILLIGRAM, QD (FURTHER REDUCTION DOWN TO 360 MG DAILY FOR 1 MONTH)
     Route: 048
  4. DEFERASIROX [Suspect]
     Active Substance: DEFERASIROX
     Dosage: 360 MILLIGRAM (360 MILLIGRAMS FOUR TIMES PER WEEK)
     Route: 048

REACTIONS (2)
  - Retinal pigment epitheliopathy [Unknown]
  - Retinal toxicity [Unknown]
